FAERS Safety Report 7044167-8 (Version None)
Quarter: 2010Q4

REPORT INFORMATION
  Report Type: 
  Country: None (occurrence: None)
  Receive Date: 20101013
  Receipt Date: 20101004
  Transmission Date: 20110411
  Serious: Yes (Other)
  Sender: FDA-Public Use
  Company Number: JP-PFIZER INC-2010123945

PATIENT
  Age: 81 Year
  Sex: Female

DRUGS (23)
  1. ZYVOX [Suspect]
     Indication: SKIN INFECTION
     Dosage: 1200 MG, 1X/DAY
     Route: 048
     Dates: start: 20100924, end: 20100926
  2. ZYVOX [Suspect]
     Dosage: 1200 MG, 1X/DAY
     Route: 041
     Dates: start: 20100927
  3. SOLULACT [Concomitant]
     Dosage: 500 ML, 1X/DAY
     Route: 041
     Dates: start: 20100924, end: 20100924
  4. SOLDEM 3 [Concomitant]
     Dosage: 500 ML, 2X/DAY
     Route: 041
     Dates: start: 20100924, end: 20100924
  5. HEPARIN LOCK-FLUSH [Concomitant]
     Dosage: 500 IU, 1X/DAY
     Route: 042
     Dates: start: 20100924, end: 20100924
  6. HEPARIN LOCK-FLUSH [Concomitant]
     Dosage: 500 IU, 1X/DAY
     Route: 042
     Dates: start: 20100926, end: 20100926
  7. SOLDACTONE [Concomitant]
     Dosage: 200 MG, 1X/DAY
     Route: 042
     Dates: start: 20100924, end: 20100924
  8. FUROSEMIDE [Concomitant]
     Dosage: 20 MG, 1X/DAY
     Route: 042
     Dates: start: 20100925, end: 20100925
  9. CONSTAN [Concomitant]
     Indication: SLEEP DISORDER
     Dosage: 1.2 MG, 1X/DAY
     Route: 048
     Dates: start: 20100930
  10. MIYARISAN BM [Concomitant]
     Dosage: 3 G, 1X/DAY
     Route: 048
     Dates: start: 20100930
  11. EBRANTIL [Concomitant]
     Indication: DYSURIA
     Dosage: 30 MG, 1X/DAY
     Route: 048
     Dates: start: 20100930
  12. THEO-DUR [Concomitant]
     Indication: DYSPNOEA
     Dosage: 200 MG, 1X/DAY
     Route: 048
     Dates: start: 20100930
  13. UBRETID [Concomitant]
     Indication: DYSURIA
     Dosage: 5 MG, 1X/DAY
     Route: 048
     Dates: start: 20100930
  14. ARICEPT [Concomitant]
     Indication: DEMENTIA
     Dosage: 5 MG, 1X/DAY
     Route: 048
     Dates: start: 20100930
  15. BUFFERIN [Concomitant]
     Dosage: 81 MG, 1X/DAY
     Route: 048
     Dates: start: 20100930
  16. FUROSEMIDE [Concomitant]
     Dosage: 40 MG, 1X/DAY
     Route: 048
     Dates: start: 20100930
  17. TAKEPRON [Concomitant]
     Dosage: 15 MG, 1X/DAY
     Route: 048
     Dates: start: 20100930
  18. ARTANE [Concomitant]
     Indication: PARKINSON'S DISEASE
     Dosage: 2 MG, 1X/DAY
     Route: 048
     Dates: start: 20100930
  19. GRAMALIL [Concomitant]
     Dosage: 50 MG, 1X/DAY
     Route: 048
     Dates: start: 20100930
  20. PAXIL [Concomitant]
     Dosage: 20 MG, 1X/DAY
     Route: 048
     Dates: start: 20100930
  21. RHUBARB [Concomitant]
     Dosage: 0.7 G, 1X/DAY
     Route: 048
     Dates: start: 20100930
  22. MYSLEE [Concomitant]
     Dosage: 10 MG, 1X/DAY
     Route: 048
     Dates: start: 20100930
  23. HOCHUUEKKITOU [Concomitant]
     Dosage: 12 G, 1X/DAY
     Route: 048
     Dates: start: 20100930

REACTIONS (3)
  - CONVULSION [None]
  - HYPOKALAEMIA [None]
  - TREMOR [None]
